FAERS Safety Report 9972364 (Version 1)
Quarter: 2014Q1

REPORT INFORMATION
  Report Type: Report from Study
  Country: US (occurrence: US)
  Receive Date: 20140306
  Receipt Date: 20140306
  Transmission Date: 20141002
  Serious: No
  Sender: FDA-Public Use
  Company Number: US-ABBVIE-13P-163-1151518-00

PATIENT
  Age: 28 Year
  Sex: Male
  Weight: 68.1 kg

DRUGS (6)
  1. HUMIRA [Suspect]
     Indication: CROHN^S DISEASE
     Dosage: 160 MILLIGRAM LOADING DOSE
     Dates: start: 20130823, end: 20130823
  2. HUMIRA [Suspect]
     Dosage: 80 MILLIGRAM SECOND DOSE
     Dates: start: 20130906, end: 20130906
  3. HUMIRA [Suspect]
     Dates: start: 20130920
  4. SULFASALAZINE [Concomitant]
     Indication: CROHN^S DISEASE
  5. IMURAN [Concomitant]
     Indication: CROHN^S DISEASE
  6. FERREX [Concomitant]
     Indication: IRON DEFICIENCY

REACTIONS (1)
  - Incorrect dose administered [Not Recovered/Not Resolved]
